FAERS Safety Report 21303553 (Version 1)
Quarter: 2022Q3

REPORT INFORMATION
  Report Type: Spontaneous
  Country: US (occurrence: US)
  Receive Date: 20220907
  Receipt Date: 20220907
  Transmission Date: 20221027
  Serious: Yes (Hospitalization, Other)
  Sender: FDA-Public Use
  Company Number: US-BIOGEN-2022BI01152693

PATIENT
  Age: 72 Year
  Sex: Female
  Weight: 75.818 kg

DRUGS (16)
  1. TECFIDERA [Suspect]
     Active Substance: DIMETHYL FUMARATE
     Indication: Multiple sclerosis
     Dosage: STARTING DOSE
     Route: 050
     Dates: start: 2017
  2. TECFIDERA [Suspect]
     Active Substance: DIMETHYL FUMARATE
     Dosage: MAINTENANCE DOSE
     Route: 050
  3. ALPRAZOLAM [Concomitant]
     Active Substance: ALPRAZOLAM
     Indication: Anxiety
     Dosage: AS NEEDED FOR ANXIETY
     Route: 050
  4. AMLODIPINE [Concomitant]
     Active Substance: AMLODIPINE BESYLATE
     Indication: Product used for unknown indication
     Dosage: TAKE 2 TABLETS BY MOUTH EVERY MORNING AND TAKE 1 TABLET EVERY NIGHT AT BEDTIME
     Route: 050
  5. BUTALBITAL, ACETAMINOPHEN, AND CAFFEINE [Concomitant]
     Active Substance: ACETAMINOPHEN\BUTALBITAL\CAFFEINE
     Indication: Product used for unknown indication
     Dosage: TAKE 1-2 CAPSSULES BY ORAL ROUTE EVERY 4-6 HOURS AS NEEDED NOT TO EXCEED 6 CAPSULES PER 24 HOURS
     Route: 050
     Dates: start: 20180821
  6. ELIQUIS [Concomitant]
     Active Substance: APIXABAN
     Indication: Product used for unknown indication
     Route: 050
  7. ESTRADIOL [Concomitant]
     Active Substance: ESTRADIOL
     Indication: Product used for unknown indication
     Dosage: INSERT 1 GRAM VAGINALLY TWICE PER WEEK FOR 90 DAYS
     Route: 050
  8. FAMOTIDINE [Concomitant]
     Active Substance: FAMOTIDINE
     Indication: Product used for unknown indication
     Route: 050
  9. FUROSEMIDE [Concomitant]
     Active Substance: FUROSEMIDE
     Indication: Product used for unknown indication
     Dosage: TAKE  1 TABLET BY MOUTH DAILY ON DAYS YOU WEIGHT 170 POUNDS OR MORE AS NEEDED
     Route: 050
  10. LIVALO [Concomitant]
     Active Substance: PITAVASTATIN CALCIUM
     Indication: Product used for unknown indication
     Route: 050
  11. METOPROLOL SUCCINATE [Concomitant]
     Active Substance: METOPROLOL SUCCINATE
     Indication: Product used for unknown indication
     Dosage: TAKE 1 AND 1/2 TABLETS BY MOUTH EVERY 12 HOURS
     Route: 050
  12. NYSTATIN TOPICAL OINTMENT [Concomitant]
     Indication: Product used for unknown indication
     Dosage: 100,000 UNIT/GRAM
     Route: 050
  13. POTASSIUM CHLORIDE [Concomitant]
     Active Substance: POTASSIUM CHLORIDE
     Indication: Product used for unknown indication
     Dosage: ONE TABLET EVERY OTHER DAY
     Route: 050
  14. PREMARIN VAGINAL [Concomitant]
     Active Substance: ESTROGENS, CONJUGATED
     Indication: Product used for unknown indication
     Route: 050
  15. TOPROL XL [Concomitant]
     Active Substance: METOPROLOL SUCCINATE
     Indication: Product used for unknown indication
     Dosage: TAKE 1/2 TABLET BY MOUTH TWICE DAILY
     Route: 050
  16. VERAPAMIL HYDROCHLORIDE [Concomitant]
     Active Substance: VERAPAMIL HYDROCHLORIDE
     Indication: Product used for unknown indication
     Route: 050
     Dates: start: 20150221

REACTIONS (22)
  - Atrial fibrillation [Unknown]
  - Deep vein thrombosis [Unknown]
  - Gastrooesophageal reflux disease [Unknown]
  - Vessel puncture site haematoma [Unknown]
  - Sleep apnoea syndrome [Unknown]
  - Fall [Recovered/Resolved]
  - Limb injury [Unknown]
  - Neck injury [Unknown]
  - Limb injury [Unknown]
  - Fatigue [Recovered/Resolved]
  - Contusion [Unknown]
  - Joint swelling [Unknown]
  - Neck pain [Recovered/Resolved]
  - Coordination abnormal [Unknown]
  - Hypertension [Unknown]
  - Autoimmune disorder [Unknown]
  - Cardiovascular disorder [Unknown]
  - Hypoaesthesia [Recovered/Resolved]
  - Headache [Recovered/Resolved]
  - Pain in extremity [Recovered/Resolved]
  - Peripheral swelling [Recovered/Resolved]
  - Flushing [Recovered/Resolved]

NARRATIVE: CASE EVENT DATE: 20190128
